FAERS Safety Report 11192333 (Version 2)
Quarter: 2015Q2

REPORT INFORMATION
  Report Type: Report from Study
  Country: US (occurrence: US)
  Receive Date: 20150616
  Receipt Date: 20150625
  Transmission Date: 20150821
  Serious: Yes (Life-Threatening, Hospitalization, Other)
  Sender: FDA-Public Use
  Company Number: US-ABBVIE-15P-163-1409206-00

PATIENT
  Age: 69 Year
  Sex: Male
  Weight: 104.6 kg

DRUGS (3)
  1. LEUPROLIDE ACETATE DEPOT [Suspect]
     Active Substance: LEUPROLIDE ACETATE
     Indication: PROSTATE CANCER
     Route: 042
     Dates: start: 20140716
  2. BICALUTAMIDE. [Concomitant]
     Active Substance: BICALUTAMIDE
     Indication: PROSTATE CANCER
     Route: 048
     Dates: start: 20140716
  3. TAK-700 (TAK-700) [Concomitant]
     Indication: PROSTATE CANCER
     Route: 048
     Dates: start: 20140723, end: 20141110

REACTIONS (4)
  - Supraventricular tachycardia [Recovered/Resolved]
  - Ventricular tachycardia [Recovered/Resolved]
  - Atrial fibrillation [Recovered/Resolved]
  - Myocardial infarction [Recovered/Resolved]

NARRATIVE: CASE EVENT DATE: 20150331
